FAERS Safety Report 23926213 (Version 1)
Quarter: 2024Q2

REPORT INFORMATION
  Report Type: Spontaneous
  Country: US (occurrence: US)
  Receive Date: 20240531
  Receipt Date: 20240531
  Transmission Date: 20240716
  Serious: No
  Sender: FDA-Public Use
  Company Number: US-RADIUS HEALTH INC.-2023US002912

PATIENT
  Sex: Female

DRUGS (2)
  1. TYMLOS [Suspect]
     Active Substance: ABALOPARATIDE
     Indication: Product used for unknown indication
     Dosage: 40 MCG, DAILY FOR TWO WEEKS
     Route: 058
  2. TYMLOS [Suspect]
     Active Substance: ABALOPARATIDE
     Dosage: 80MCG QD
     Route: 058

REACTIONS (9)
  - Illness [Unknown]
  - Migraine [Unknown]
  - Head discomfort [Unknown]
  - Product dose omission issue [Unknown]
  - Injection site pain [Unknown]
  - Intentional product misuse [Recovered/Resolved]
  - Heart rate increased [Unknown]
  - Bone pain [Recovered/Resolved]
  - Arthralgia [Recovered/Resolved]
